FAERS Safety Report 26052992 (Version 1)
Quarter: 2025Q4

REPORT INFORMATION
  Report Type: Spontaneous
  Country: JP (occurrence: JP)
  Receive Date: 20251117
  Receipt Date: 20251117
  Transmission Date: 20260117
  Serious: Yes (Hospitalization)
  Sender: REGENERON
  Company Number: JP-BAYER-2025A148996

PATIENT
  Sex: Female

DRUGS (1)
  1. EYLEA [Suspect]
     Active Substance: AFLIBERCEPT
     Indication: Age-related macular degeneration
     Dosage: 8 MG, ONCE, SOLUTION FOR INJECTION IN PRE-FILLED SYRINGE, 114.3 MG/ML
     Route: 031
     Dates: start: 20251028, end: 20251028

REACTIONS (2)
  - Acute macular neuroretinopathy [Not Recovered/Not Resolved]
  - Visual acuity reduced [Unknown]
